FAERS Safety Report 25202039 (Version 1)
Quarter: 2025Q2

REPORT INFORMATION
  Report Type: Spontaneous
  Country: US (occurrence: US)
  Receive Date: 20250416
  Receipt Date: 20250416
  Transmission Date: 20250717
  Serious: Yes (Other)
  Sender: AUROBINDO
  Company Number: US-AUROBINDO-AUR-APL-2025-019158

PATIENT
  Age: 33 Year
  Sex: Female

DRUGS (3)
  1. LIDOCAINE [Suspect]
     Active Substance: LIDOCAINE
     Indication: Arrhythmic storm
     Route: 065
  2. NADOLOL [Suspect]
     Active Substance: NADOLOL
     Indication: Arrhythmic storm
     Route: 065
  3. NEXVIAZYME [Concomitant]
     Active Substance: AVALGLUCOSIDASE ALFA-NGPT
     Indication: Pancreatic enzyme replacement therapy
     Route: 065

REACTIONS (1)
  - Treatment failure [Unknown]
